FAERS Safety Report 12522748 (Version 1)
Quarter: 2016Q3

REPORT INFORMATION
  Report Type: Spontaneous
  Country: US (occurrence: US)
  Receive Date: 20160701
  Receipt Date: 20160701
  Transmission Date: 20161109
  Serious: No
  Sender: FDA-Public Use
  Company Number: US-TAKEDA-2016TUS011010

PATIENT
  Sex: Male
  Weight: 72.56 kg

DRUGS (1)
  1. ENTYVIO [Suspect]
     Active Substance: VEDOLIZUMAB
     Indication: COLITIS ULCERATIVE
     Dosage: UNK
     Route: 042

REACTIONS (5)
  - Cough [Unknown]
  - Upper-airway cough syndrome [Unknown]
  - Asthma [Unknown]
  - Throat irritation [Unknown]
  - Gastrointestinal bacterial overgrowth [Not Recovered/Not Resolved]
